FAERS Safety Report 14700350 (Version 1)
Quarter: 2018Q1

REPORT INFORMATION
  Report Type: Spontaneous
  Country: US (occurrence: US)
  Receive Date: 20180330
  Receipt Date: 20180330
  Transmission Date: 20180509
  Serious: No
  Sender: FDA-Public Use
  Company Number: None

PATIENT
  Age: 84 Year
  Sex: Male
  Weight: 77.11 kg

DRUGS (13)
  1. TYLENOL EXTRA STRENGTH [Concomitant]
     Active Substance: ACETAMINOPHEN
  2. FUROSEMIDE. [Concomitant]
     Active Substance: FUROSEMIDE
  3. LISINOPRIL. [Suspect]
     Active Substance: LISINOPRIL
  4. AMLODIPINE [Concomitant]
     Active Substance: AMLODIPINE BESYLATE
  5. SPIRONOLACTONE 25MG TABS [Suspect]
     Active Substance: SPIRONOLACTONE
     Indication: DRUG THERAPY
     Dosage: FREQUENCY - 1 IN THE MORNING
     Route: 048
  6. GLIMEPIRIDE. [Concomitant]
     Active Substance: GLIMEPIRIDE
  7. PRAVASTATIN. [Concomitant]
     Active Substance: PRAVASTATIN
  8. CIPRO [Concomitant]
     Active Substance: CIPROFLOXACIN HYDROCHLORIDE
  9. ASPIRIN 81 MG [Concomitant]
     Active Substance: ASPIRIN
  10. CITALOPRAM/HYDRO [Concomitant]
  11. CARVEDILOL. [Concomitant]
     Active Substance: CARVEDILOL
  12. TRAZODONE HYDROCHLORIDE. [Concomitant]
     Active Substance: TRAZODONE HYDROCHLORIDE
  13. ISOSORBIDE MONO ER 30MG TABLET [Concomitant]
     Active Substance: ISOSORBIDE MONONITRATE

REACTIONS (7)
  - Breast pain [None]
  - Nipple pain [None]
  - Nipple swelling [None]
  - Gynaecomastia [None]
  - Nipple disorder [None]
  - Weight increased [None]
  - Breast mass [None]

NARRATIVE: CASE EVENT DATE: 20170601
